FAERS Safety Report 5070050-3 (Version None)
Quarter: 2006Q3

REPORT INFORMATION
  Report Type: 
  Country: None (occurrence: None)
  Receive Date: 20060731
  Receipt Date: 20060717
  Transmission Date: 20061208
  Serious: Yes (Death)
  Sender: FDA-Public Use
  Company Number: 2006S1000140

PATIENT
  Age: 7 Day
  Sex: Male

DRUGS (2)
  1. INOMAX [Suspect]
     Indication: LUNG DISORDER
     Dosage: 5 PPM; CONT
     Route: 055
     Dates: start: 20060615, end: 20060624
  2. INOMAX [Suspect]
     Indication: PROPHYLAXIS
     Dosage: 5 PPM; CONT
     Route: 055
     Dates: start: 20060615, end: 20060624

REACTIONS (3)
  - ENDOCARDITIS [None]
  - NEONATAL DISORDER [None]
  - TOXIC SHOCK SYNDROME STAPHYLOCOCCAL [None]
